FAERS Safety Report 22124349 (Version 3)
Quarter: 2023Q2

REPORT INFORMATION
  Report Type: Spontaneous
  Country: US (occurrence: US)
  Receive Date: 20230322
  Receipt Date: 20230517
  Transmission Date: 20230722
  Serious: Yes (Other)
  Sender: FDA-Public Use
  Company Number: US-VERICEL-US-VCEL-23-000062

PATIENT
  Age: 45 Year
  Sex: Male

DRUGS (1)
  1. MACI [Suspect]
     Active Substance: AUTOLOGOUS CULTURED CHONDROCYTES\SUS SCROFA COLLAGEN
     Indication: Arthralgia
     Dosage: UNK
     Route: 050
     Dates: start: 20230302, end: 20230302

REACTIONS (1)
  - Application site joint infection [Unknown]

NARRATIVE: CASE EVENT DATE: 20230309
